FAERS Safety Report 8954292 (Version 1)
Quarter: 2012Q4

REPORT INFORMATION
  Report Type: 
  Country: ZA (occurrence: ZA)
  Receive Date: 20121210
  Receipt Date: 20121210
  Transmission Date: 20130627
  Serious: Yes (Death)
  Sender: FDA-Public Use
  Company Number: ZA-009507513-1212ZAF002434

PATIENT
  Age: 51 Year
  Sex: Female

DRUGS (1)
  1. CANCIDAS [Suspect]

REACTIONS (1)
  - Death [Fatal]
